FAERS Safety Report 9342743 (Version 1)
Quarter: 2013Q2

REPORT INFORMATION
  Report Type: Spontaneous
  Country: FR (occurrence: FR)
  Receive Date: 20130611
  Receipt Date: 20130611
  Transmission Date: 20140414
  Serious: Yes (Hospitalization)
  Sender: FDA-Public Use
  Company Number: FR-ELI_LILLY_AND_COMPANY-FR201305009707

PATIENT
  Age: 42 Year
  Sex: Female

DRUGS (1)
  1. ALIMTA [Suspect]

REACTIONS (2)
  - Suicide attempt [Unknown]
  - Depression [Unknown]
